FAERS Safety Report 7372730-3 (Version None)
Quarter: 2011Q1

REPORT INFORMATION
  Report Type: 
  Country: None (occurrence: None)
  Receive Date: 20110324
  Receipt Date: 20110311
  Transmission Date: 20110831
  Serious: Yes (Other)
  Sender: FDA-Public Use
  Company Number: PHHY2011SI21896

PATIENT
  Sex: Male

DRUGS (2)
  1. CLOZAPINE [Interacting]
     Indication: SCHIZOPHRENIA
     Route: 048
  2. AMOXICILLIN AND CLAVULANATE POTASSIUM [Suspect]
     Indication: TOOTH ABSCESS
     Dosage: 1000 MG, BID

REACTIONS (6)
  - DRUG INTERACTION [None]
  - SCHIZOPHRENIA [None]
  - HALLUCINATION [None]
  - DRUG EFFECT DECREASED [None]
  - FEAR [None]
  - SLEEP DISORDER [None]
